FAERS Safety Report 11776403 (Version 3)
Quarter: 2016Q3

REPORT INFORMATION
  Report Type: Spontaneous
  Country: RU (occurrence: RU)
  Receive Date: 20151125
  Receipt Date: 20160711
  Transmission Date: 20161109
  Serious: Yes (Death, Other)
  Sender: FDA-Public Use
  Company Number: RU-ACTELION-A-CH2015-126498

PATIENT
  Age: 4 Year
  Sex: Female
  Weight: 12 kg

DRUGS (2)
  1. ZAVESCA [Suspect]
     Active Substance: MIGLUSTAT
     Indication: NIEMANN-PICK DISEASE
     Dosage: 100 MG, QD
     Route: 048
     Dates: start: 201410
  2. ZAVESCA [Suspect]
     Active Substance: MIGLUSTAT
     Dosage: 100 MG, BID
     Route: 048

REACTIONS (5)
  - Flatulence [Unknown]
  - Niemann-Pick disease [Fatal]
  - Disease progression [Fatal]
  - Thrombocytopenia [Not Recovered/Not Resolved]
  - Transfusion [Unknown]

NARRATIVE: CASE EVENT DATE: 201510
